FAERS Safety Report 8538801-0 (Version None)
Quarter: 2012Q3

REPORT INFORMATION
  Report Type: 
  Country: None (occurrence: None)
  Receive Date: 20120726
  Receipt Date: 20120724
  Transmission Date: 20120928
  Serious: Yes (Life-Threatening)
  Sender: FDA-Public Use
  Company Number: SK-BAYER-2012-072713

PATIENT
  Age: 22 Year
  Sex: Female
  Weight: 61 kg

DRUGS (2)
  1. ESTRADIOL VALERATE/DIENOGEST [Suspect]
     Indication: POLYMENORRHOEA
     Dosage: UNK
     Dates: start: 20110628, end: 20120305
  2. DETRALEX [Concomitant]
     Dosage: 1 DF, BID
     Route: 048
     Dates: start: 20100101

REACTIONS (2)
  - PAIN IN EXTREMITY [None]
  - SENSATION OF HEAVINESS [None]
